FAERS Safety Report 9732197 (Version 2)
Quarter: 2014Q1

REPORT INFORMATION
  Report Type: Spontaneous
  Country: AR (occurrence: AR)
  Receive Date: 20131204
  Receipt Date: 20140227
  Transmission Date: 20141002
  Serious: Yes (Death)
  Sender: FDA-Public Use
  Company Number: AR-PFIZER INC-2013344423

PATIENT
  Age: 48 Year
  Sex: Male

DRUGS (5)
  1. SUTENT [Suspect]
     Indication: METASTATIC RENAL CELL CARCINOMA
     Dosage: 50 MG, 1X/DAY (4 WEEKS ON, 2 WEEKS OFF)
     Dates: start: 20130906, end: 20131110
  2. MORPHINE [Concomitant]
     Indication: PAIN
     Dosage: UNK
     Dates: start: 20130808
  3. KLOSIDOL [Concomitant]
     Dosage: UNK
     Dates: start: 20130702
  4. ALPLAX [Concomitant]
     Dosage: UNK
     Dates: start: 20130930
  5. OMEPRAZOL [Concomitant]
     Dosage: 40 MG, 1X/DAY

REACTIONS (4)
  - Cardio-respiratory arrest [Fatal]
  - Pleural effusion [Fatal]
  - Disease progression [Fatal]
  - Metastatic renal cell carcinoma [Fatal]
